FAERS Safety Report 9264360 (Version 1)
Quarter: 2013Q2

REPORT INFORMATION
  Report Type: Report from Study
  Country: DE (occurrence: DE)
  Receive Date: 20130430
  Receipt Date: 20130506
  Transmission Date: 20140414
  Serious: Yes (Death, Hospitalization)
  Sender: FDA-Public Use
  Company Number: DE-BAXTER-2013BAX015424

PATIENT
  Sex: Male

DRUGS (17)
  1. ENDOXAN 1G [Suspect]
     Indication: B-CELL LYMPHOMA
     Route: 042
     Dates: start: 20130321
  2. DOXORUBICINE [Suspect]
     Indication: B-CELL LYMPHOMA
     Route: 042
     Dates: start: 20130321
  3. LIPOSOMAL VINCRISTINE [Suspect]
     Indication: B-CELL LYMPHOMA
     Route: 042
     Dates: start: 20130321
  4. RITUXIMAB [Suspect]
     Indication: B-CELL LYMPHOMA
     Route: 042
     Dates: start: 20130320
  5. PEGFILGRASTIM [Suspect]
     Indication: B-CELL LYMPHOMA
     Route: 058
     Dates: start: 20130326
  6. PREDNISONE [Suspect]
     Indication: B-CELL LYMPHOMA
     Route: 048
     Dates: start: 20130321
  7. ACICLOVIR [Concomitant]
     Indication: PROPHYLAXIS
     Route: 048
     Dates: start: 20130320
  8. GRANISETRON [Concomitant]
     Indication: ANTIEMETIC SUPPORTIVE CARE
     Route: 042
     Dates: start: 20130321
  9. MESNA [Concomitant]
     Indication: PROPHYLAXIS
     Route: 048
  10. LEVOFLOXACIN [Concomitant]
     Indication: PROPHYLAXIS
     Route: 048
  11. TORASEMIDE [Concomitant]
     Indication: RENAL FAILURE
     Dosage: 20/12.5 MG
     Route: 048
  12. SOLIFENACIN [Concomitant]
     Indication: INCONTINENCE
     Route: 048
  13. ISOPHAN INSULIN [Concomitant]
     Indication: DIABETES MELLITUS
     Route: 058
  14. RIVAROXABAN [Concomitant]
     Indication: PROPHYLAXIS
     Route: 048
  15. HYDROCHLOROTHIAZIDE/LISINOPRIL [Concomitant]
     Indication: HYPERTENSION
     Dosage: 20/12
     Route: 048
  16. PANTOPRAZOLE SODIUM [Concomitant]
     Indication: PROPHYLAXIS
     Route: 048
     Dates: start: 20130322
  17. POTASSIUM SODIUM HYDROGEN CITRATE [Concomitant]
     Indication: BLOOD URIC ACID
     Dosage: 3 SPPONS
     Route: 065

REACTIONS (7)
  - General physical health deterioration [Recovered/Resolved]
  - Hyperglycaemia [Unknown]
  - Leukopenia [Recovered/Resolved]
  - Thrombocytopenia [Not Recovered/Not Resolved]
  - Leukopenia [Fatal]
  - Febrile neutropenia [Fatal]
  - Pneumonia aspiration [Fatal]
